FAERS Safety Report 22853274 (Version 4)
Quarter: 2023Q4

REPORT INFORMATION
  Report Type: Spontaneous
  Country: US (occurrence: US)
  Receive Date: 20230823
  Receipt Date: 20231206
  Transmission Date: 20240110
  Serious: Yes (Other)
  Sender: FDA-Public Use
  Company Number: US-BRISTOL-MYERS SQUIBB COMPANY-2023-117097

PATIENT
  Age: 77 Year
  Sex: Male

DRUGS (2)
  1. THALOMID [Suspect]
     Active Substance: THALIDOMIDE
     Indication: Myelofibrosis
     Route: 048
     Dates: start: 20230817
  2. THALOMID [Suspect]
     Active Substance: THALIDOMIDE
     Indication: Myelodysplastic syndrome
     Route: 048
     Dates: start: 20231025

REACTIONS (2)
  - Off label use [Unknown]
  - Malignant neoplasm progression [Not Recovered/Not Resolved]
